FAERS Safety Report 21706129 (Version 3)
Quarter: 2023Q1

REPORT INFORMATION
  Report Type: Report from Study
  Country: US (occurrence: US)
  Receive Date: 20221209
  Receipt Date: 20230202
  Transmission Date: 20230417
  Serious: Yes (Hospitalization, Other)
  Sender: FDA-Public Use
  Company Number: US-TAKEDA-2022TUS076868

PATIENT
  Age: 56 Year
  Sex: Male
  Weight: 104 kg

DRUGS (1)
  1. MOBOCERTINIB [Suspect]
     Active Substance: MOBOCERTINIB
     Indication: Lung neoplasm malignant
     Dosage: 160 MILLIGRAM, QD
     Route: 048
     Dates: start: 20221010

REACTIONS (9)
  - Respiratory disorder [Unknown]
  - Pneumonia [Unknown]
  - Metastases to bone [Unknown]
  - Rhinorrhoea [Unknown]
  - Rash [Unknown]
  - Gastrooesophageal reflux disease [Unknown]
  - Decreased appetite [Unknown]
  - Diarrhoea [Unknown]
  - Drug ineffective [Unknown]

NARRATIVE: CASE EVENT DATE: 20221019
